FAERS Safety Report 6421875-0 (Version None)
Quarter: 2009Q4

REPORT INFORMATION
  Report Type: 
  Country: None (occurrence: None)
  Receive Date: 20091029
  Receipt Date: 20091029
  Transmission Date: 20100525
  Serious: Yes (Other)
  Sender: FDA-Public Use
  Company Number: None

PATIENT
  Sex: Female
  Weight: 72.68 kg

DRUGS (1)
  1. ALENDRONATE 70MG MYLAN [Suspect]
     Indication: OSTEOPOROSIS
     Dosage: 70MG -1 TABLET- ONCE WEEKLY PO
     Route: 048

REACTIONS (1)
  - OSTEONECROSIS [None]
